FAERS Safety Report 5393478-0 (Version None)
Quarter: 2007Q3

REPORT INFORMATION
  Report Type: 
  Country: None (occurrence: None)
  Receive Date: 20070719
  Receipt Date: 20070719
  Transmission Date: 20080115
  Serious: Yes (Hospitalization, Disabling)
  Sender: FDA-Public Use
  Company Number: None

PATIENT
  Age: 43 Year
  Sex: Female
  Weight: 72.5755 kg

DRUGS (2)
  1. TYSABRI [Suspect]
     Indication: MULTIPLE SCLEROSIS
     Dates: start: 20070201, end: 20070401
  2. TYSABRI [Suspect]
     Indication: MULTIPLE SCLEROSIS
     Dates: start: 20061201

REACTIONS (5)
  - ANTINUCLEAR ANTIBODY POSITIVE [None]
  - ARTHRITIS [None]
  - LUPUS-LIKE SYNDROME [None]
  - RASH [None]
  - SJOGREN'S SYNDROME [None]
